FAERS Safety Report 5388897-2 (Version None)
Quarter: 2007Q3

REPORT INFORMATION
  Report Type: 
  Country: None (occurrence: None)
  Receive Date: 20070717
  Receipt Date: 20070709
  Transmission Date: 20080115
  Serious: Yes (Death)
  Sender: FDA-Public Use
  Company Number: HQWYE974509JUL07

PATIENT
  Sex: Female

DRUGS (1)
  1. RAPAMUNE [Suspect]
     Indication: LIVER TRANSPLANT
     Route: 048

REACTIONS (1)
  - MULTI-ORGAN FAILURE [None]
